FAERS Safety Report 5017492-X (Version None)
Quarter: 2006Q2

REPORT INFORMATION
  Report Type: 
  Country: None (occurrence: None)
  Receive Date: 20060525
  Receipt Date: 20060503
  Transmission Date: 20061013
  Serious: Yes (Hospitalization)
  Sender: FDA-Public Use
  Company Number: US200605000699

PATIENT
  Age: 60 Year
  Sex: Female
  Weight: 77 kg

DRUGS (2)
  1. GEMCITABINE HYDROCHLORIDE (GEMCITABINE HYDROCHLORIDE) [Suspect]
     Indication: BREAST CANCER
     Dosage: 1000 MG/M2, OTHER, INTRAVENOUS
     Route: 042
     Dates: start: 20060324, end: 20060421
  2. PACLITAXEL [Suspect]
     Indication: BREAST CANCER
     Dosage: 125 MG/M2, OTHER, INTRAVENOUS
     Route: 042
     Dates: start: 20060324, end: 20060421

REACTIONS (7)
  - ERYTHEMA MULTIFORME [None]
  - NAUSEA [None]
  - ORAL DISCOMFORT [None]
  - RASH [None]
  - STEVENS-JOHNSON SYNDROME [None]
  - TOXIC EPIDERMAL NECROLYSIS [None]
  - VOMITING [None]
